FAERS Safety Report 8086389-3 (Version None)
Quarter: 2012Q1

REPORT INFORMATION
  Report Type: 
  Country: None (occurrence: None)
  Receive Date: 20120128
  Receipt Date: 20110505
  Transmission Date: 20120608
  Serious: Yes (Hospitalization)
  Sender: FDA-Public Use
  Company Number: US-ABBOTT-11P-163-0723796-00

PATIENT
  Sex: Male

DRUGS (9)
  1. FISH OIL [Concomitant]
     Indication: PRODUCT USED FOR UNKNOWN INDICATION
  2. VALIUM [Concomitant]
     Indication: INSOMNIA
  3. TRAZODONE HCL [Concomitant]
     Indication: INSOMNIA
  4. CALCIUM [Concomitant]
     Indication: PRODUCT USED FOR UNKNOWN INDICATION
  5. CRESTOR [Concomitant]
     Indication: CARDIAC DISORDER
  6. TRICOR [Concomitant]
     Indication: CARDIAC DISORDER
  7. DIOVAN [Concomitant]
     Indication: BLOOD PRESSURE
  8. HUMIRA [Suspect]
     Indication: PSORIASIS
     Route: 058
  9. FLOMAX [Concomitant]
     Indication: PRODUCT USED FOR UNKNOWN INDICATION

REACTIONS (4)
  - URINARY TRACT INFECTION [None]
  - FALL [None]
  - FEMUR FRACTURE [None]
  - ARTHRITIS [None]
